FAERS Safety Report 5848045-9 (Version None)
Quarter: 2008Q3

REPORT INFORMATION
  Report Type: 
  Country: None (occurrence: None)
  Receive Date: 20080814
  Receipt Date: 20080731
  Transmission Date: 20090109
  Serious: Yes (Hospitalization)
  Sender: FDA-Public Use
  Company Number: 2007AP000428

PATIENT
  Age: 29 Year
  Sex: Female

DRUGS (3)
  1. PAROXETINE HCL [Suspect]
  2. ACETAMINOPHEN [Suspect]
     Dosage: 48 G; 1X, PO
     Route: 048
  3. CODEINE (CODEINE) [Suspect]

REACTIONS (2)
  - HEPATOTOXICITY [None]
  - OVERDOSE [None]
